FAERS Safety Report 16761209 (Version 1)
Quarter: 2019Q3

REPORT INFORMATION
  Report Type: Spontaneous
  Country: US (occurrence: US)
  Receive Date: 20190830
  Receipt Date: 20190830
  Transmission Date: 20191005
  Serious: No
  Sender: FDA-Public Use
  Company Number: US-ANIPHARMA-2019-US-008371

PATIENT
  Age: 77 Year
  Sex: Female
  Weight: 54.43 kg

DRUGS (5)
  1. VITAMIN D [Concomitant]
     Active Substance: VITAMIN D NOS
  2. CALCIUM [Concomitant]
     Active Substance: CALCIUM
  3. ANASTROZOLE. [Suspect]
     Active Substance: ANASTROZOLE
     Indication: BREAST CANCER FEMALE
     Dosage: ONCE DAILY
     Route: 048
     Dates: start: 20190326, end: 20190407
  4. LIPITOR [Concomitant]
     Active Substance: ATORVASTATIN CALCIUM
  5. MULTIVITAMIN [Concomitant]
     Active Substance: VITAMINS

REACTIONS (2)
  - Vulvovaginal pain [Recovered/Resolved]
  - Vulvovaginal burning sensation [Recovered/Resolved]

NARRATIVE: CASE EVENT DATE: 20190329
